FAERS Safety Report 17933438 (Version 1)
Quarter: 2020Q2

REPORT INFORMATION
  Report Type: Spontaneous
  Country: US (occurrence: US)
  Receive Date: 20200623
  Receipt Date: 20200623
  Transmission Date: 20200714
  Serious: No
  Sender: FDA-Public Use
  Company Number: US-MATRIXX INITIATIVES, INC.-2086572

PATIENT
  Age: 27 Year
  Sex: Female
  Weight: 61.36 kg

DRUGS (2)
  1. UNSPECIFIED ASTHMA INHALER [Concomitant]
  2. ZICAM COLD REMEDY NASAL SWABS (HOMEOPATHICS) [Suspect]
     Active Substance: HOMEOPATHICS\ZINC ACETATE\ZINC GLUCONATE
     Indication: NASOPHARYNGITIS
     Route: 045
     Dates: start: 20200617, end: 20200619

REACTIONS (2)
  - Dysgeusia [None]
  - Anosmia [None]
